FAERS Safety Report 21001513 (Version 1)
Quarter: 2022Q2

REPORT INFORMATION
  Report Type: Report from Study
  Country: US (occurrence: US)
  Receive Date: 20220624
  Receipt Date: 20220624
  Transmission Date: 20220721
  Serious: Yes (Death, Other)
  Sender: FDA-Public Use
  Company Number: US-GILEAD-2022-0586363

PATIENT
  Age: 26 Year
  Sex: Male

DRUGS (44)
  1. AZTREONAM LYSINE [Suspect]
     Active Substance: AZTREONAM LYSINE
     Indication: Bronchiectasis
     Dosage: RECONSTITUTE WITH 1ML , TID, QOM
     Route: 055
  2. METHADONE HYDROCHLORIDE [Concomitant]
     Active Substance: METHADONE HYDROCHLORIDE
  3. MORPHINE SULFATE [Concomitant]
     Active Substance: MORPHINE SULFATE
  4. MIRTAZAPINE [Concomitant]
     Active Substance: MIRTAZAPINE
  5. ACETYLCYSTEINE [Concomitant]
     Active Substance: ACETYLCYSTEINE
  6. PROVENTIL [Concomitant]
     Active Substance: ALBUTEROL
  7. BACLOFEN [Concomitant]
     Active Substance: BACLOFEN
  8. CARISOPRODOL [Concomitant]
     Active Substance: CARISOPRODOL
  9. CETIRIZINE HYDROCHLORIDE [Concomitant]
     Active Substance: CETIRIZINE HYDROCHLORIDE
  10. CARVEDILOL [Concomitant]
     Active Substance: CARVEDILOL
  11. DIAZEPAM [Concomitant]
     Active Substance: DIAZEPAM
  12. ESCITALOPRAM OXALATE [Concomitant]
     Active Substance: ESCITALOPRAM OXALATE
  13. ALBUTEROL SULFATE\IPRATROPIUM BROMIDE [Concomitant]
     Active Substance: ALBUTEROL SULFATE\IPRATROPIUM BROMIDE
  14. LACTOBACILLUS ACIDOPHILUS\LACTOBACILLUS DELBRUECKII SUBSP. BULGARICUS [Concomitant]
     Active Substance: LACTOBACILLUS ACIDOPHILUS\LACTOBACILLUS DELBRUECKII SUBSP. BULGARICUS
  15. MELATONIN MAXIMUM STRENGTH [Concomitant]
  16. MONTELUKAST SODIUM [Concomitant]
     Active Substance: MONTELUKAST SODIUM
  17. SODIUM CHLORIDE [Concomitant]
     Active Substance: SODIUM CHLORIDE
  18. AMITIZA [Concomitant]
     Active Substance: LUBIPROSTONE
  19. DEXAMETHASONE [Concomitant]
     Active Substance: DEXAMETHASONE
  20. GABAPENTIN [Concomitant]
     Active Substance: GABAPENTIN
  21. CLINDAMYCIN PHOSPHATE [Concomitant]
     Active Substance: CLINDAMYCIN PHOSPHATE
  22. DIPHENHYDRAMINE HYDROCHLORIDE [Concomitant]
     Active Substance: DIPHENHYDRAMINE HYDROCHLORIDE
  23. FLUTICASONE PROPIONATE [Concomitant]
     Active Substance: FLUTICASONE PROPIONATE
  24. PANTOPRAZOLE SODIUM [Concomitant]
     Active Substance: PANTOPRAZOLE SODIUM
  25. ONDANSETRON [Concomitant]
     Active Substance: ONDANSETRON
  26. JEVITY 2 CON FOS [Concomitant]
  27. POLY-VI-SOL [ASCORBIC ACID;COLECALCIFEROL;NICOTINAMIDE;RETINOL;RIBOFLA [Concomitant]
  28. AQUAPHOR (XIPAMIDE) [Concomitant]
     Active Substance: XIPAMIDE
  29. HEPARIN LOCK FLUSH [Concomitant]
     Active Substance: HEPARIN SODIUM
  30. SENNA AND DOCUSATE SODIUM [Concomitant]
     Active Substance: DOCUSATE SODIUM\SENNOSIDES
  31. SILVADENE [Concomitant]
     Active Substance: SILVER SULFADIAZINE
  32. LIDOCAINE VISCOUS [Concomitant]
     Active Substance: LIDOCAINE HYDROCHLORIDE
  33. LACTULOSE [Concomitant]
     Active Substance: LACTULOSE
  34. TEMAZEPAM [Concomitant]
     Active Substance: TEMAZEPAM
  35. BACTRIM DS [Concomitant]
     Active Substance: SULFAMETHOXAZOLE\TRIMETHOPRIM
  36. IBUPROFEN [Concomitant]
     Active Substance: IBUPROFEN
  37. METHOCARBAMOL [Concomitant]
     Active Substance: METHOCARBAMOL
  38. MINERAL OIL [Concomitant]
     Active Substance: MINERAL OIL
  39. TOBRAMYCIN [Concomitant]
     Active Substance: TOBRAMYCIN
  40. NORCO [Concomitant]
     Active Substance: ACETAMINOPHEN\HYDROCODONE BITARTRATE
  41. CLONAZEPAM [Concomitant]
     Active Substance: CLONAZEPAM
  42. ALBUTEROL SULFATE [Concomitant]
     Active Substance: ALBUTEROL SULFATE
  43. GAVILYTE N [Concomitant]
  44. GUAIFENESIN [Concomitant]
     Active Substance: GUAIFENESIN

REACTIONS (2)
  - Death [Fatal]
  - Off label use [Unknown]

NARRATIVE: CASE EVENT DATE: 20220610
